FAERS Safety Report 7930132-2 (Version None)
Quarter: 2011Q4

REPORT INFORMATION
  Report Type: 
  Country: None (occurrence: None)
  Receive Date: 20111121
  Receipt Date: 20111108
  Transmission Date: 20120403
  Serious: Yes (Hospitalization)
  Sender: FDA-Public Use
  Company Number: JP-PFIZER INC-2011278513

PATIENT
  Age: 43 Year
  Sex: Female

DRUGS (4)
  1. TRANEXAMIC ACID [Suspect]
     Dosage: 300 MG, DAILY
     Route: 048
     Dates: start: 20110921, end: 20110926
  2. LOBU [Suspect]
     Dosage: 750 MG, AS NEEDED
     Route: 048
     Dates: start: 20110921
  3. MEIACT [Suspect]
     Dosage: 200 MG, DAILY
     Route: 048
     Dates: start: 20110921, end: 20110926
  4. CELECOXIB [Suspect]
     Dosage: 200 MG, DAILY
     Route: 048
     Dates: start: 20110921, end: 20110926

REACTIONS (1)
  - LIVER DISORDER [None]
